FAERS Safety Report 8276407-1 (Version None)
Quarter: 2012Q2

REPORT INFORMATION
  Report Type: 
  Country: None (occurrence: None)
  Receive Date: 20120412
  Receipt Date: 20120403
  Transmission Date: 20120825
  Serious: Yes (Hospitalization, Other)
  Sender: FDA-Public Use
  Company Number: JP-BRISTOL-MYERS SQUIBB COMPANY-16388134

PATIENT
  Age: 64 Year
  Sex: Female

DRUGS (16)
  1. HYZAAR [Concomitant]
     Indication: HYPERTENSION
     Route: 048
  2. BETAMAC [Concomitant]
     Route: 048
  3. AMITRIPTYLINE HCL [Concomitant]
     Indication: DEPRESSION
     Route: 048
  4. SCOPOLAMINE [Concomitant]
     Route: 048
  5. LANSOPRAZOLE [Concomitant]
     Indication: GASTRIC ULCER
     Route: 048
  6. BROTIZOLAM [Concomitant]
     Indication: DEPRESSION
     Route: 048
  7. CALBLOCK [Concomitant]
     Indication: HYPERTENSION
     Route: 048
  8. TENORMIN [Concomitant]
     Indication: HYPERTENSION
     Route: 048
  9. HUMALOG [Concomitant]
     Indication: DIABETES MELLITUS
     Route: 058
  10. ATENOLOL [Concomitant]
  11. SENIRAN [Concomitant]
     Indication: DEPRESSION
     Route: 048
  12. METFORMIN HCL [Suspect]
     Indication: DIABETES MELLITUS
     Dosage: 24FB11-1FEB12(222D) 9FB12-STOPD
     Route: 048
     Dates: start: 20110624, end: 20120101
  13. VALTREX [Concomitant]
     Indication: HERPES ZOSTER
     Route: 048
     Dates: start: 20120125, end: 20120130
  14. LANTUS [Concomitant]
     Indication: DIABETES MELLITUS
     Route: 058
  15. LOXONIN [Concomitant]
     Route: 048
  16. CEFDINIR [Concomitant]
     Route: 048

REACTIONS (3)
  - HERPES ZOSTER [None]
  - RENAL FAILURE ACUTE [None]
  - ACIDOSIS [None]
